FAERS Safety Report 15701093 (Version 1)
Quarter: 2018Q4

REPORT INFORMATION
  Report Type: Report from Study
  Country: IT (occurrence: IT)
  Receive Date: 20181207
  Receipt Date: 20181207
  Transmission Date: 20190205
  Serious: Yes (Hospitalization, Other)
  Sender: FDA-Public Use
  Company Number: IT-SANIK-2018SA163116AA

PATIENT
  Age: 78 Year
  Sex: Female

DRUGS (9)
  1. SIMVASTATIN. [Interacting]
     Active Substance: SIMVASTATIN
     Route: 065
  2. WARFARIN SODIUM. [Interacting]
     Active Substance: WARFARIN SODIUM
     Dosage: UNK
  3. METOPROLOL SALT NOT SPECIFIED [Interacting]
     Active Substance: METOPROLOL
     Route: 065
  4. CLOPIDOGREL BISULFATE. [Interacting]
     Active Substance: CLOPIDOGREL BISULFATE
     Dosage: UNK
  5. ITRACONAZOLE. [Interacting]
     Active Substance: ITRACONAZOLE
     Route: 065
  6. INFLUENZA VACCINE [Interacting]
     Active Substance: INFLUENZA VIRUS VACCINE
     Indication: IMMUNISATION
  7. RAMIPRIL. [Interacting]
     Active Substance: RAMIPRIL
  8. ENOXAPARIN SODIUM. [Suspect]
     Active Substance: ENOXAPARIN SODIUM
     Route: 065
  9. ACETYLSALICYLIC ACID [Interacting]
     Active Substance: ASPIRIN
     Dosage: UNK
     Route: 065

REACTIONS (8)
  - Anaemia [Unknown]
  - Ecchymosis [Unknown]
  - Pain in extremity [Unknown]
  - Skin candida [Unknown]
  - Haematoma [Unknown]
  - Peripheral swelling [Unknown]
  - Drug interaction [Unknown]
  - Rhabdomyolysis [Unknown]
